FAERS Safety Report 8401873-8 (Version None)
Quarter: 2012Q2

REPORT INFORMATION
  Report Type: 
  Country: None (occurrence: None)
  Receive Date: 20120601
  Receipt Date: 20120523
  Transmission Date: 20120825
  Serious: Yes (Hospitalization)
  Sender: FDA-Public Use
  Company Number: US-GENZYME-FABR-1002537

PATIENT
  Sex: Female
  Weight: 140.59 kg

DRUGS (1)
  1. FABRAZYME [Suspect]
     Indication: FABRY'S DISEASE
     Dosage: 140 MG, Q2W
     Route: 042
     Dates: start: 20041201

REACTIONS (1)
  - STENT PLACEMENT [None]
